FAERS Safety Report 13176796 (Version 1)
Quarter: 2017Q1

REPORT INFORMATION
  Report Type: Spontaneous
  Country: US (occurrence: US)
  Receive Date: 20170201
  Receipt Date: 20170201
  Transmission Date: 20170428
  Serious: Yes (Hospitalization)
  Sender: FDA-Public Use
  Company Number: US-BEH-2017077664

PATIENT
  Age: 81 Year
  Sex: Female
  Weight: 48.98 kg

DRUGS (20)
  1. HIZENTRA [Suspect]
     Active Substance: HUMAN IMMUNOGLOBULIN G
     Dosage: UNK
     Route: 058
  2. LIDOCAINE PRILOCAINE BIOGARAN [Concomitant]
  3. FLUTICASONE. [Concomitant]
     Active Substance: FLUTICASONE
  4. RESVERATROL [Concomitant]
     Active Substance: RESVERATROL
  5. ZITHROMAX [Concomitant]
     Active Substance: AZITHROMYCIN DIHYDRATE
  6. MUPIROCIN. [Concomitant]
     Active Substance: MUPIROCIN
  7. HIZENTRA [Suspect]
     Active Substance: HUMAN IMMUNOGLOBULIN G
     Dosage: UNK
     Route: 058
  8. HIZENTRA [Suspect]
     Active Substance: HUMAN IMMUNOGLOBULIN G
     Indication: IMMUNODEFICIENCY COMMON VARIABLE
     Dosage: 5 G, QW
     Route: 058
     Dates: start: 20100909
  9. EPIPEN [Concomitant]
     Active Substance: EPINEPHRINE
  10. FOLIC ACID. [Concomitant]
     Active Substance: FOLIC ACID
  11. LEXAPRO [Concomitant]
     Active Substance: ESCITALOPRAM OXALATE
  12. FLAXSEED [Concomitant]
     Active Substance: FLAX SEED
  13. COENZYME Q10 [Concomitant]
     Active Substance: UBIDECARENONE
  14. VITAMIN C [Concomitant]
     Active Substance: ASCORBIC ACID
  15. VITAMIN D3 [Concomitant]
     Active Substance: CHOLECALCIFEROL
  16. PREDNISONE. [Concomitant]
     Active Substance: PREDNISONE
  17. ZINC. [Concomitant]
     Active Substance: ZINC
  18. LIDOCAINE. [Concomitant]
     Active Substance: LIDOCAINE
  19. CALCIUM MAGNESIUM WITH VITAMIN D3 [Concomitant]
  20. DIPHENHYDRAMINE. [Concomitant]
     Active Substance: DIPHENHYDRAMINE

REACTIONS (1)
  - Internal haemorrhage [Unknown]

NARRATIVE: CASE EVENT DATE: 201701
